FAERS Safety Report 6278349-X (Version None)
Quarter: 2009Q3

REPORT INFORMATION
  Report Type: 
  Country: None (occurrence: None)
  Receive Date: 20090720
  Receipt Date: 20090720
  Transmission Date: 20100115
  Serious: Yes (Life-Threatening, Hospitalization, Disabling, Other)
  Sender: FDA-Public Use
  Company Number: None

PATIENT
  Age: 47 Year
  Sex: Female
  Weight: 68.0396 kg

DRUGS (1)
  1. AMPHOTERICIN B [Suspect]
     Indication: POST PROCEDURAL INFECTION
     Dosage: SPRAY 2 TIMES A DAY ENDOSINUSIAL
     Route: 006
     Dates: start: 20050701, end: 20050707

REACTIONS (19)
  - APPARENT DEATH [None]
  - DRUG DISPENSING ERROR [None]
  - DYSPNOEA [None]
  - IATROGENIC INJURY [None]
  - INAPPROPRIATE SCHEDULE OF DRUG ADMINISTRATION [None]
  - INCORRECT DOSE ADMINISTERED [None]
  - LIP SWELLING [None]
  - MENINGITIS CHEMICAL [None]
  - NEURALGIA [None]
  - OVERDOSE [None]
  - PHARYNGEAL OEDEMA [None]
  - SWELLING FACE [None]
  - SWOLLEN TONGUE [None]
  - THERAPEUTIC AGENT TOXICITY [None]
  - THERMAL BURN [None]
  - TREMOR [None]
  - UNEMPLOYMENT [None]
  - VOCAL CORD DISORDER [None]
  - WRONG DRUG ADMINISTERED [None]
